FAERS Safety Report 10047056 (Version 1)
Quarter: 2014Q1

REPORT INFORMATION
  Report Type: Spontaneous
  Country: US (occurrence: US)
  Receive Date: 20140331
  Receipt Date: 20140331
  Transmission Date: 20141002
  Serious: No
  Sender: FDA-Public Use
  Company Number: US-MYLANLABS-2013S1003975

PATIENT
  Age: 21 Year
  Sex: Female
  Weight: 68.04 kg

DRUGS (3)
  1. FENTANYL TRANSDERMAL SYSTEM [Suspect]
     Indication: PAIN
     Dosage: CHANGES Q 72H
     Route: 062
     Dates: start: 201210
  2. ASKINA DERM FILM DRESSING [Suspect]
     Route: 062
  3. PERCOCET [Concomitant]
     Indication: BREAKTHROUGH PAIN

REACTIONS (2)
  - Application site exfoliation [Not Recovered/Not Resolved]
  - Application site pruritus [Not Recovered/Not Resolved]
